FAERS Safety Report 17047152 (Version 1)
Quarter: 2019Q4

REPORT INFORMATION
  Report Type: Spontaneous
  Country: AR (occurrence: AR)
  Receive Date: 20191119
  Receipt Date: 20191119
  Transmission Date: 20200122
  Serious: Yes (Hospitalization, Other)
  Sender: FDA-Public Use
  Company Number: AR-B.I. PHARMACEUTICALS,INC./RIDGEFIELD-2019-BI-113557

PATIENT
  Age: 83 Year
  Sex: Male

DRUGS (1)
  1. PRADAXA [Suspect]
     Active Substance: DABIGATRAN ETEXILATE MESYLATE
     Indication: PRODUCT USED FOR UNKNOWN INDICATION
     Route: 065

REACTIONS (6)
  - Oedema peripheral [Unknown]
  - Traumatic haemothorax [Unknown]
  - Haematoma [Unknown]
  - Leukocytosis [Unknown]
  - Chronic kidney disease [Unknown]
  - Anticoagulation drug level above therapeutic [Recovering/Resolving]

NARRATIVE: CASE EVENT DATE: 20191109
